FAERS Safety Report 4960279-4 (Version None)
Quarter: 2006Q2

REPORT INFORMATION
  Report Type: 
  Country: None (occurrence: None)
  Receive Date: 20060403
  Receipt Date: 20060322
  Transmission Date: 20061013
  Serious: Yes (Other)
  Sender: FDA-Public Use
  Company Number: PHEH2006US03810

PATIENT

DRUGS (1)
  1. AREDIA [Suspect]

REACTIONS (1)
  - OSTEONECROSIS [None]
